FAERS Safety Report 25671800 (Version 1)
Quarter: 2025Q3

REPORT INFORMATION
  Report Type: Spontaneous
  Country: US (occurrence: US)
  Receive Date: 20250812
  Receipt Date: 20250812
  Transmission Date: 20251021
  Serious: Yes (Other)
  Sender: GRIFOLS
  Company Number: US-IGSA-BIG0037177

PATIENT
  Age: 58 Year
  Sex: Female
  Weight: 78.005 kg

DRUGS (1)
  1. PROLASTIN-C LIQUID [Suspect]
     Active Substance: .ALPHA.1-PROTEINASE INHIBITOR HUMAN
     Indication: Alpha-1 antitrypsin deficiency
     Dosage: 4880 MILLIGRAM, Q.WK.
     Route: 042

REACTIONS (4)
  - Compression fracture [Unknown]
  - Musculoskeletal chest pain [Unknown]
  - Fibromyalgia [Unknown]
  - Chest pain [Unknown]

NARRATIVE: CASE EVENT DATE: 20250727
